FAERS Safety Report 5835897-1 (Version None)
Quarter: 2008Q3

REPORT INFORMATION
  Report Type: 
  Country: None (occurrence: None)
  Receive Date: 20080805
  Receipt Date: 20080731
  Transmission Date: 20090109
  Serious: Yes (Death, Hospitalization, Other)
  Sender: FDA-Public Use
  Company Number: 2008SP015680

PATIENT
  Age: 56 Year
  Sex: Male
  Weight: 53 kg

DRUGS (17)
  1. TEMODAL [Suspect]
     Indication: ANAPLASTIC ASTROCYTOMA
     Dosage: PO, 200 MG/M2; QD; PO
     Route: 048
     Dates: start: 20060524, end: 20060820
  2. TEMODAL [Suspect]
     Indication: ANAPLASTIC ASTROCYTOMA
     Dosage: PO, 200 MG/M2; QD; PO
     Route: 048
     Dates: start: 20060915, end: 20060919
  3. TEMODAL [Suspect]
     Indication: ANAPLASTIC ASTROCYTOMA
     Dosage: PO, 200 MG/M2; QD; PO
     Route: 048
     Dates: start: 20061013, end: 20061017
  4. TEMODAL [Suspect]
     Indication: ANAPLASTIC ASTROCYTOMA
     Dosage: PO, 200 MG/M2; QD; PO
     Route: 048
     Dates: start: 20061110, end: 20061114
  5. TEMODAL [Suspect]
     Indication: ANAPLASTIC ASTROCYTOMA
     Dosage: PO, 200 MG/M2; QD; PO
     Route: 048
     Dates: start: 20061208, end: 20061212
  6. TEMODAL [Suspect]
     Indication: ANAPLASTIC ASTROCYTOMA
     Dosage: PO, 200 MG/M2; QD; PO
     Route: 048
     Dates: start: 20070112, end: 20070116
  7. TEMODAL [Suspect]
     Indication: ANAPLASTIC ASTROCYTOMA
     Dosage: PO, 200 MG/M2; QD; PO
     Route: 048
     Dates: start: 20070209, end: 20070213
  8. TEMODAL [Suspect]
     Indication: ANAPLASTIC ASTROCYTOMA
     Dosage: PO, 200 MG/M2; QD; PO
     Route: 048
     Dates: start: 20070314, end: 20070318
  9. TEMODAL [Suspect]
     Indication: ANAPLASTIC ASTROCYTOMA
     Dosage: PO, 200 MG/M2; QD; PO
     Route: 048
     Dates: start: 20070411, end: 20070415
  10. TEMODAL [Suspect]
     Indication: ANAPLASTIC ASTROCYTOMA
     Dosage: PO, 200 MG/M2; QD; PO
     Route: 048
     Dates: start: 20070516, end: 20070520
  11. TEMODAL [Suspect]
     Indication: ANAPLASTIC ASTROCYTOMA
     Dosage: PO, 200 MG/M2; QD; PO
     Route: 048
     Dates: start: 20070613, end: 20070617
  12. MAGMITT [Concomitant]
  13. FAMOTIDINE [Concomitant]
  14. FUNGUARD [Concomitant]
  15. ADENOSINE [Concomitant]
  16. PRIDOL [Concomitant]
  17. URSO 250 [Concomitant]

REACTIONS (6)
  - ALTERED STATE OF CONSCIOUSNESS [None]
  - C-REACTIVE PROTEIN INCREASED [None]
  - DISEASE PROGRESSION [None]
  - LYMPHOCYTE COUNT DECREASED [None]
  - PNEUMONIA [None]
  - WHITE BLOOD CELL COUNT DECREASED [None]
